FAERS Safety Report 6385248-1 (Version None)
Quarter: 2009Q4

REPORT INFORMATION
  Report Type: 
  Country: None (occurrence: None)
  Receive Date: 20091002
  Receipt Date: 20081230
  Transmission Date: 20100525
  Serious: No
  Sender: FDA-Public Use
  Company Number: US-ASTRAZENECA-2007UW24415

PATIENT
  Age: 58 Year
  Sex: Female
  Weight: 78.9 kg

DRUGS (4)
  1. ARIMIDEX [Suspect]
     Indication: BREAST CANCER
     Route: 048
  2. DIOVAN [Concomitant]
     Route: 048
  3. CATAPRES [Concomitant]
     Route: 048
  4. MULTI-VITAMINS [Concomitant]
     Route: 048

REACTIONS (3)
  - NODULE [None]
  - RHINITIS [None]
  - VERTIGO [None]
